FAERS Safety Report 4963010-1 (Version None)
Quarter: 2006Q2

REPORT INFORMATION
  Report Type: 
  Country: None (occurrence: None)
  Receive Date: 20060405
  Receipt Date: 20060323
  Transmission Date: 20061013
  Serious: Yes (Hospitalization)
  Sender: FDA-Public Use
  Company Number: JP-JNJFOC-20060304065

PATIENT
  Sex: Male
  Weight: 66.8 kg

DRUGS (7)
  1. CRAVIT [Suspect]
     Indication: UPPER RESPIRATORY TRACT INFECTION
     Route: 048
     Dates: start: 20060213, end: 20060213
  2. PELEX [Concomitant]
     Route: 048
  3. PELEX [Concomitant]
     Route: 048
  4. PELEX [Concomitant]
     Route: 048
  5. PELEX [Concomitant]
     Route: 048
  6. METILON [Concomitant]
     Route: 030
  7. KN SOLUTION 3B [Concomitant]
     Route: 041

REACTIONS (2)
  - PYREXIA [None]
  - RASH [None]
